FAERS Safety Report 5885233-X (Version None)
Quarter: 2008Q3

REPORT INFORMATION
  Report Type: 
  Country: None (occurrence: None)
  Receive Date: 20080912
  Receipt Date: 20080905
  Transmission Date: 20090109
  Serious: Yes (Other)
  Sender: FDA-Public Use
  Company Number: 2008SP012153

PATIENT
  Age: 25 Year
  Sex: Female

DRUGS (4)
  1. CELESTONE SOLUSPAN [Suspect]
     Indication: ARTHRALGIA
     Dates: start: 20080618, end: 20080618
  2. CELESTONE SOLUSPAN [Suspect]
  3. LIDOCAINE [Suspect]
     Indication: ARTHRALGIA
     Dates: start: 20080618, end: 20080618
  4. MARCAINE [Suspect]
     Indication: ARTHRALGIA
     Dates: start: 20080618, end: 20080618

REACTIONS (4)
  - DIZZINESS [None]
  - INJURY [None]
  - SYNCOPE [None]
  - WRONG TECHNIQUE IN DRUG USAGE PROCESS [None]
